FAERS Safety Report 6593480-7 (Version None)
Quarter: 2010Q1

REPORT INFORMATION
  Report Type: 
  Country: None (occurrence: None)
  Receive Date: 20100222
  Receipt Date: 20090527
  Transmission Date: 20100710
  Serious: No
  Sender: FDA-Public Use
  Company Number: US-BRISTOL-MYERS SQUIBB COMPANY-14638142

PATIENT
  Age: 17 Year
  Sex: Female
  Weight: 48 kg

DRUGS (4)
  1. ORENCIA [Suspect]
     Indication: JUVENILE ARTHRITIS
     Dosage: NUMBER OF INFUSION:4
     Dates: end: 20090501
  2. PROTONIX [Concomitant]
  3. VITAMINS [Concomitant]
  4. CALCIUM [Concomitant]

REACTIONS (3)
  - ALOPECIA [None]
  - DIARRHOEA [None]
  - HEADACHE [None]
